FAERS Safety Report 16229314 (Version 1)
Quarter: 2019Q2

REPORT INFORMATION
  Report Type: Report from Study
  Country: CA (occurrence: CA)
  Receive Date: 20190423
  Receipt Date: 20190423
  Transmission Date: 20190711
  Serious: Yes (Other)
  Sender: FDA-Public Use
  Company Number: CA-TAKEDA-2019TUS024267

PATIENT
  Age: 91 Year
  Sex: Male

DRUGS (4)
  1. HIZENTRA [Concomitant]
     Active Substance: HUMAN IMMUNOGLOBULIN G
     Dosage: UNK
     Route: 065
  2. IXAZOMIB [Suspect]
     Active Substance: IXAZOMIB
     Indication: PLASMA CELL MYELOMA
     Dosage: 4 MILLIGRAM
     Route: 048
     Dates: start: 20180117
  3. NITRO                              /00003201/ [Concomitant]
     Active Substance: NITROGLYCERIN
  4. PREDNISONE. [Concomitant]
     Active Substance: PREDNISONE
     Dosage: UNK
     Route: 065

REACTIONS (1)
  - Plasma cell myeloma [Unknown]
